FAERS Safety Report 22190812 (Version 1)
Quarter: 2023Q2

REPORT INFORMATION
  Report Type: Spontaneous
  Country: US (occurrence: None)
  Receive Date: 20230410
  Receipt Date: 20230410
  Transmission Date: 20230721
  Serious: Yes (Other)
  Sender: FDA-Public Use
  Company Number: US-ROCHE-3322822

PATIENT
  Age: 41 Year
  Sex: Female
  Weight: 59.020 kg

DRUGS (5)
  1. OCREVUS [Suspect]
     Active Substance: OCRELIZUMAB
     Indication: Multiple sclerosis
     Dosage: MOST RECENT OCREVUS INFUSION OCCURRED ON 18/MAR/2023.
     Route: 042
     Dates: start: 20220325
  2. SOLU-MEDROL [Concomitant]
     Active Substance: METHYLPREDNISOLONE SODIUM SUCCINATE
     Route: 042
  3. DIPHENHYDRAMINE [Concomitant]
     Active Substance: DIPHENHYDRAMINE
     Dosage: 1 CAPSULE (25MG) BY MOUTH 30 MINUTES PRIOR TO EACH INFUSION
     Route: 048
  4. ACETAMINOPHEN [Concomitant]
     Active Substance: ACETAMINOPHEN
     Dosage: 1 TABLET (325MG) BY MOUTH 30 MINUTES PRIOR TO EACH INFUSION.
     Route: 048
  5. GABAPENTIN [Concomitant]
     Active Substance: GABAPENTIN

REACTIONS (8)
  - Systemic lupus erythematosus [Unknown]
  - Fatigue [Unknown]
  - Nausea [Unknown]
  - Hypoaesthesia [Unknown]
  - Headache [Unknown]
  - Spinal pain [Unknown]
  - Cough [Unknown]
  - Pyrexia [Unknown]

NARRATIVE: CASE EVENT DATE: 20230318
